FAERS Safety Report 5030759-4 (Version None)
Quarter: 2006Q2

REPORT INFORMATION
  Report Type: 
  Country: None (occurrence: None)
  Receive Date: 20060615
  Receipt Date: 20060524
  Transmission Date: 20061013
  Serious: Yes (Other)
  Sender: FDA-Public Use
  Company Number: 2006BH010319

PATIENT

DRUGS (2)
  1. VINORELBINE TARTRATE [Suspect]
     Indication: NON-SMALL CELL LUNG CANCER
     Dosage: 25 MG/M***2; UNK IVBOL
     Route: 040
  2. GEMCITABINE [Suspect]
     Dosage: 1000 MG/M**2:IV
     Route: 042

REACTIONS (1)
  - FEBRILE NEUTROPENIA [None]
